FAERS Safety Report 13911645 (Version 1)
Quarter: 2017Q3

REPORT INFORMATION
  Report Type: Spontaneous
  Country: US (occurrence: US)
  Receive Date: 20170828
  Receipt Date: 20170828
  Transmission Date: 20171127
  Serious: No
  Sender: FDA-Public Use
  Company Number: US-ROCHE-1144111

PATIENT
  Sex: Male
  Weight: 33.6 kg

DRUGS (4)
  1. NUTROPIN AQ [Suspect]
     Active Substance: SOMATROPIN
     Indication: DWARFISM
     Route: 065
  2. ARGININE HCL [Concomitant]
     Active Substance: ARGININE HYDROCHLORIDE
     Route: 065
  3. INSULIN [Concomitant]
     Active Substance: INSULIN NOS
  4. NUTROPIN AQ [Suspect]
     Active Substance: SOMATROPIN
     Indication: GROWTH HORMONE DEFICIENCY

REACTIONS (4)
  - Somnolence [Unknown]
  - Pallor [Unknown]
  - Mood swings [Unknown]
  - Hyperhidrosis [Unknown]
